FAERS Safety Report 6045329-9 (Version None)
Quarter: 2009Q1

REPORT INFORMATION
  Report Type: 
  Country: None (occurrence: None)
  Receive Date: 20090121
  Receipt Date: 20090115
  Transmission Date: 20090719
  Serious: Yes (Hospitalization, Other)
  Sender: FDA-Public Use
  Company Number: PHBS2009DE00530

PATIENT
  Age: 30 Year
  Sex: Male

DRUGS (5)
  1. CYCLOSPORINE [Suspect]
     Indication: LIVER TRANSPLANT
     Dosage: 1 MG/KG, BID
  2. BASILIXIMAB [Suspect]
     Indication: LIVER TRANSPLANT
     Dosage: 20 MG, ONCE/SINGLE
  3. BASILIXIMAB [Suspect]
     Dosage: 20 MG, ONCE/SINGLE
  4. PREDNISOLONE [Concomitant]
     Indication: LIVER TRANSPLANT
     Dosage: 500 MG, ONCE/SINGLE
  5. PREDNISOLONE [Concomitant]
     Dosage: 1 MG/KG/DAY

REACTIONS (6)
  - DUODENAL ULCER HAEMORRHAGE [None]
  - EPSTEIN-BARR VIRUS INFECTION [None]
  - LYMPHADENOPATHY [None]
  - NON-HODGKIN'S LYMPHOMA [None]
  - SURGERY [None]
  - TUBERCULOSIS [None]
